FAERS Safety Report 7130924-6 (Version None)
Quarter: 2010Q4

REPORT INFORMATION
  Report Type: 
  Country: None (occurrence: None)
  Receive Date: 20101201
  Receipt Date: 20101118
  Transmission Date: 20110411
  Serious: Yes (Congenital Anomaly)
  Sender: FDA-Public Use
  Company Number: A0679425A

PATIENT
  Sex: Male

DRUGS (5)
  1. PAXIL [Suspect]
     Indication: DEPRESSION
  2. PRENATAL VITAMINS [Concomitant]
  3. FERROUS SULFATE TAB [Concomitant]
  4. AMOXICILLIN [Concomitant]
  5. NASONEX [Concomitant]

REACTIONS (2)
  - CONGENITAL PULMONARY HYPERTENSION [None]
  - DRUG EXPOSURE DURING PREGNANCY [None]
